FAERS Safety Report 10375039 (Version 1)
Quarter: 2014Q1

REPORT INFORMATION
  Report Type: Spontaneous
  Country: US (occurrence: None)
  Receive Date: 20140306
  Receipt Date: 20140306
  Transmission Date: 20141002
  Serious: Yes (Disabling)
  Sender: FDA-Public Use
  Company Number: 163-21880-12121881

PATIENT
  Age: 59 Year
  Sex: Male
  Weight: 93.44 kg

DRUGS (3)
  1. REVLIMID [Suspect]
     Indication: PLASMA CELL MYELOMA
     Route: 048
     Dates: start: 20100609
  2. DEXAMETHASONE (DEXAMETHASONE) [Concomitant]
  3. ZOMETA (ZOLEDRONIC ACID) [Concomitant]

REACTIONS (1)
  - Neuropathy peripheral [None]
